FAERS Safety Report 12793204 (Version 2)
Quarter: 2017Q2

REPORT INFORMATION
  Report Type: Spontaneous
  Country: US (occurrence: US)
  Receive Date: 20160929
  Receipt Date: 20170406
  Transmission Date: 20170830
  Serious: No
  Sender: FDA-Public Use
  Company Number: US-JNJFOC-20160916483

PATIENT
  Sex: Male

DRUGS (11)
  1. RISPERDAL [Suspect]
     Active Substance: RISPERIDONE
     Indication: BIPOLAR DISORDER
     Route: 048
     Dates: start: 20100113, end: 20100406
  2. RISPERDAL [Suspect]
     Active Substance: RISPERIDONE
     Indication: BIPOLAR DISORDER
     Route: 048
     Dates: start: 20100406, end: 20100503
  3. INVEGA [Suspect]
     Active Substance: PALIPERIDONE
     Indication: PRODUCT USED FOR UNKNOWN INDICATION
     Route: 048
  4. RISPERDAL [Suspect]
     Active Substance: RISPERIDONE
     Indication: MOOD SWINGS
     Route: 048
     Dates: start: 20100113, end: 20100406
  5. RISPERDAL [Suspect]
     Active Substance: RISPERIDONE
     Indication: BIPOLAR DISORDER
     Route: 048
     Dates: start: 20090708, end: 20090902
  6. RISPERDAL [Suspect]
     Active Substance: RISPERIDONE
     Indication: BIPOLAR DISORDER
     Route: 048
     Dates: start: 20090424, end: 20090708
  7. RISPERDAL [Suspect]
     Active Substance: RISPERIDONE
     Indication: BIPOLAR DISORDER
     Route: 048
     Dates: start: 20090902, end: 20100113
  8. RISPERDAL [Suspect]
     Active Substance: RISPERIDONE
     Indication: MOOD SWINGS
     Route: 048
     Dates: start: 20100406, end: 20100503
  9. RISPERDAL [Suspect]
     Active Substance: RISPERIDONE
     Indication: MOOD SWINGS
     Route: 048
     Dates: start: 20090708, end: 20090902
  10. RISPERDAL [Suspect]
     Active Substance: RISPERIDONE
     Indication: MOOD SWINGS
     Route: 048
     Dates: start: 20090424, end: 20090708
  11. RISPERDAL [Suspect]
     Active Substance: RISPERIDONE
     Indication: MOOD SWINGS
     Route: 048
     Dates: start: 20090902, end: 20100113

REACTIONS (1)
  - Injury [Unknown]
